FAERS Safety Report 18535703 (Version 1)
Quarter: 2020Q4

REPORT INFORMATION
  Report Type: Not Available
  Country: None (occurrence: None)
  Receive Date: 20201123
  Receipt Date: 20201123
  Transmission Date: 20210114
  Serious: Yes (Other)
  Sender: FDA-Public Use
  Company Number: US-AKORN PHARMACEUTICALS-2020AKN00433

PATIENT
  Age: 30 Year
  Sex: Female
  Weight: 75 kg

DRUGS (1)
  1. MYORISAN [Suspect]
     Active Substance: ISOTRETINOIN

REACTIONS (9)
  - Therapeutic product effect incomplete [Recovered/Resolved]
  - Acne [Recovered/Resolved]
  - Skin exfoliation [Unknown]
  - Swelling [Unknown]
  - Furuncle [Recovered/Resolved]
  - Dry skin [Unknown]
  - Product dose omission issue [Recovered/Resolved]
  - Off label use [Recovered/Resolved]
  - Therapeutic product effect delayed [Recovered/Resolved]

NARRATIVE: CASE EVENT DATE: 20191010
